FAERS Safety Report 9379562 (Version 1)
Quarter: 2013Q3

REPORT INFORMATION
  Report Type: Report from Study
  Country: US (occurrence: US)
  Receive Date: 20130702
  Receipt Date: 20130702
  Transmission Date: 20140515
  Serious: Yes (Hospitalization)
  Sender: FDA-Public Use
  Company Number: US-JNJFOC-20130617590

PATIENT
  Age: 33 Year
  Sex: 0

DRUGS (10)
  1. REMICADE [Suspect]
     Indication: PSORIATIC ARTHROPATHY
     Route: 042
  2. REMICADE [Suspect]
     Indication: PSORIASIS
     Route: 042
  3. HUMIRA [Suspect]
     Indication: PSORIATIC ARTHROPATHY
     Route: 065
  4. HUMIRA [Suspect]
     Indication: PSORIASIS
     Route: 065
  5. STELARA [Suspect]
     Indication: PSORIATIC ARTHROPATHY
     Route: 058
  6. STELARA [Suspect]
     Indication: PSORIASIS
     Route: 058
  7. SIMPONI [Suspect]
     Indication: PSORIATIC ARTHROPATHY
     Route: 058
  8. SIMPONI [Suspect]
     Indication: PSORIASIS
     Route: 058
  9. ENBREL [Suspect]
     Indication: PSORIATIC ARTHROPATHY
     Route: 065
  10. ENBREL [Suspect]
     Indication: PSORIASIS
     Route: 065

REACTIONS (5)
  - Nausea [Unknown]
  - Vomiting [Unknown]
  - Alopecia [Unknown]
  - Drug ineffective [Unknown]
  - Fatigue [Unknown]
